FAERS Safety Report 8325228-X (Version None)
Quarter: 2012Q2

REPORT INFORMATION
  Report Type: 
  Country: None (occurrence: None)
  Receive Date: 20120427
  Receipt Date: 20120413
  Transmission Date: 20120825
  Serious: Yes (Other)
  Sender: FDA-Public Use
  Company Number: JP-2012-15002

PATIENT
  Age: 84 Year
  Sex: Male
  Weight: 37 kg

DRUGS (2)
  1. FLOXAID (FUROSEMIDE) INJECTION [Concomitant]
  2. SAMSCA [Suspect]
     Indication: FLUID RETENTION
     Dosage: 15 MG MILLIGRAM(S), QAM, ORAL
     Route: 048
     Dates: start: 20120306

REACTIONS (5)
  - HYPERCHLORAEMIA [None]
  - HYPERNATRAEMIA [None]
  - BLOOD UREA INCREASED [None]
  - HAEMOGLOBIN DECREASED [None]
  - RED BLOOD CELL COUNT DECREASED [None]
